FAERS Safety Report 6497396-6 (Version None)
Quarter: 2009Q4

REPORT INFORMATION
  Report Type: 
  Country: None (occurrence: None)
  Receive Date: 20091215
  Receipt Date: 20091204
  Transmission Date: 20100525
  Serious: Yes (Hospitalization, Other)
  Sender: FDA-Public Use
  Company Number: US-CELGENEUS-163-21880-09120730

PATIENT
  Sex: Male

DRUGS (5)
  1. REVLIMID [Suspect]
     Indication: MULTIPLE MYELOMA
     Route: 048
     Dates: start: 20090801
  2. REVLIMID [Suspect]
     Route: 048
     Dates: start: 20070501
  3. REVLIMID [Suspect]
     Route: 048
     Dates: start: 20090301
  4. DOXYCYCLINE [Concomitant]
     Indication: INFECTION
     Route: 065
     Dates: start: 20091201
  5. ANTIBIOTICS [Concomitant]
     Indication: INFECTION
     Route: 050
     Dates: start: 20090101, end: 20090101

REACTIONS (2)
  - GALLBLADDER OPERATION [None]
  - INCISION SITE INFECTION [None]
